FAERS Safety Report 25136387 (Version 2)
Quarter: 2025Q2

REPORT INFORMATION
  Report Type: Report from Study
  Country: US (occurrence: US)
  Receive Date: 20250328
  Receipt Date: 20250417
  Transmission Date: 20250717
  Serious: Yes (Other)
  Sender: ABBVIE
  Company Number: US-ABBVIE-6197917

PATIENT
  Age: 67 Year
  Sex: Female
  Weight: 58.966 kg

DRUGS (4)
  1. CREON [Suspect]
     Active Substance: PANCRELIPASE AMYLASE\PANCRELIPASE LIPASE\PANCRELIPASE PROTEASE
     Indication: Pancreatic failure
     Route: 048
     Dates: start: 202410
  2. SERTRALINE [Concomitant]
     Active Substance: SERTRALINE HYDROCHLORIDE
     Indication: Depression
  3. ATORVASTATIN [Concomitant]
     Active Substance: ATORVASTATIN
     Indication: Blood cholesterol
  4. PANTOPRAZOLE [Concomitant]
     Active Substance: PANTOPRAZOLE
     Indication: Antacid therapy

REACTIONS (6)
  - Upper airway obstruction [Recovered/Resolved]
  - Procedural pain [Recovered/Resolved]
  - Respiratory disorder [Recovering/Resolving]
  - Post procedural haemorrhage [Recovered/Resolved]
  - Post procedural swelling [Recovered/Resolved]
  - Obstructive airways disorder [Recovering/Resolving]

NARRATIVE: CASE EVENT DATE: 20250101
